FAERS Safety Report 18775506 (Version 2)
Quarter: 2022Q2

REPORT INFORMATION
  Report Type: Spontaneous
  Country: US (occurrence: US)
  Receive Date: 20210122
  Receipt Date: 20220401
  Transmission Date: 20220721
  Serious: Yes (Other)
  Sender: FDA-Public Use
  Company Number: US-GLAXOSMITHKLINE-US2021GSK008492

PATIENT
  Sex: Female

DRUGS (18)
  1. ZANTAC [Suspect]
     Active Substance: RANITIDINE HYDROCHLORIDE
     Indication: Dyspepsia
     Dosage: 25 MG OVER THE COUNTER
     Route: 065
     Dates: start: 200011, end: 201805
  2. ZANTAC [Suspect]
     Active Substance: RANITIDINE HYDROCHLORIDE
     Dosage: 75 MG, QD
     Route: 065
     Dates: start: 200011, end: 201805
  3. ZANTAC [Suspect]
     Active Substance: RANITIDINE HYDROCHLORIDE
     Dosage: 25 MG
     Route: 065
     Dates: start: 200011, end: 201805
  4. ZANTAC [Suspect]
     Active Substance: RANITIDINE HYDROCHLORIDE
     Dosage: 75 MG
     Route: 065
     Dates: start: 200011, end: 201805
  5. ZANTAC [Suspect]
     Active Substance: RANITIDINE HYDROCHLORIDE
     Indication: Dyspepsia
     Dosage: 25 MG OVER THE COUNTER
     Route: 065
     Dates: start: 200011, end: 201805
  6. ZANTAC [Suspect]
     Active Substance: RANITIDINE HYDROCHLORIDE
     Dosage: 75 MG, QD
     Route: 065
     Dates: start: 200011, end: 201805
  7. ZANTAC [Suspect]
     Active Substance: RANITIDINE HYDROCHLORIDE
     Dosage: 25 MG
     Route: 065
     Dates: start: 200011, end: 201805
  8. ZANTAC [Suspect]
     Active Substance: RANITIDINE HYDROCHLORIDE
     Dosage: 75 MG
     Route: 065
     Dates: start: 200011, end: 201805
  9. RANITIDINE [Suspect]
     Active Substance: RANITIDINE
     Indication: Dyspepsia
     Dosage: 25 MG OVER THE COUNTER
     Route: 065
     Dates: start: 200011, end: 201805
  10. RANITIDINE [Suspect]
     Active Substance: RANITIDINE
     Dosage: 75 MG, QD
     Route: 065
     Dates: start: 200011, end: 201805
  11. RANITIDINE [Suspect]
     Active Substance: RANITIDINE
     Dosage: UNKNOWN AT THIS TIME PRESCRIPTION
     Route: 065
     Dates: start: 200011, end: 201805
  12. RANITIDINE [Suspect]
     Active Substance: RANITIDINE
     Dosage: UNK
  13. RANITIDINE [Suspect]
     Active Substance: RANITIDINE
     Indication: Dyspepsia
     Dosage: 25 MG OVER THE COUNTER
     Route: 065
     Dates: start: 200011, end: 201805
  14. RANITIDINE [Suspect]
     Active Substance: RANITIDINE
     Dosage: 75 MG, QD
     Route: 065
     Dates: start: 200011, end: 201805
  15. RANITIDINE [Suspect]
     Active Substance: RANITIDINE
     Dosage: UNKNOWN AT THIS TIME PRESCRIPTION
     Route: 065
     Dates: start: 200011, end: 201805
  16. RANITIDINE [Suspect]
     Active Substance: RANITIDINE
     Dosage: UNK
  17. RANITIDINE HYDROCHLORIDE [Suspect]
     Active Substance: RANITIDINE HYDROCHLORIDE
     Indication: Dyspepsia
     Dosage: UNKNOWN AT THIS TIME OVER THE COUNTER
     Route: 065
     Dates: start: 200011, end: 201805
  18. RANITIDINE HYDROCHLORIDE [Suspect]
     Active Substance: RANITIDINE HYDROCHLORIDE
     Dosage: UNK, QD
     Route: 065
     Dates: start: 200011, end: 201805

REACTIONS (1)
  - Breast cancer [Unknown]
